FAERS Safety Report 7676113-8 (Version None)
Quarter: 2011Q3

REPORT INFORMATION
  Report Type: 
  Country: None (occurrence: None)
  Receive Date: 20110811
  Receipt Date: 20110801
  Transmission Date: 20111222
  Serious: Yes (Hospitalization)
  Sender: FDA-Public Use
  Company Number: US-JNJFOC-20070601996

PATIENT
  Sex: Female
  Weight: 73 kg

DRUGS (7)
  1. INFLIXIMAB [Suspect]
     Dosage: TOTAL 8 INFUSIONS
     Route: 042
     Dates: start: 20060320
  2. INFLIXIMAB [Suspect]
     Route: 042
     Dates: start: 20050531, end: 20060126
  3. AZATHIOPRINE [Concomitant]
  4. MESALAMINE [Concomitant]
  5. INFLIXIMAB [Suspect]
     Indication: COLITIS ULCERATIVE
     Route: 042
     Dates: start: 20050517
  6. INFLIXIMAB [Suspect]
     Dosage: TOTAL 11 INFUSIONS
     Route: 042
     Dates: start: 20070919
  7. PREDNISONE [Concomitant]

REACTIONS (1)
  - COLITIS ULCERATIVE [None]
